FAERS Safety Report 20328840 (Version 1)
Quarter: 2022Q1

REPORT INFORMATION
  Report Type: Spontaneous
  Country: US (occurrence: None)
  Receive Date: 20220112
  Receipt Date: 20220112
  Transmission Date: 20220423
  Serious: Yes (Life-Threatening, Other)
  Sender: FDA-Public Use
  Company Number: None

PATIENT
  Age: 56 Year
  Sex: Male
  Weight: 99 kg

DRUGS (9)
  1. REGEN-COV [Suspect]
     Active Substance: CASIRIVIMAB\IMDEVIMAB
     Indication: SARS-CoV-2 test positive
     Dosage: OTHER QUANTITY : 4 INJECTION(S);?OTHER FREQUENCY : 1 TIME;?OTHER ROUTE : INJECTION SUCUTANEOUS;?
     Route: 050
     Dates: start: 20220103, end: 20220103
  2. ALBUTEROL [Concomitant]
     Active Substance: ALBUTEROL
  3. METHYLPREDNISOLONE [Concomitant]
  4. BENADRYL [Concomitant]
     Active Substance: DIPHENHYDRAMINE HYDROCHLORIDE
  5. PEPCID [Concomitant]
     Active Substance: FAMOTIDINE
  6. IBUPROFUN [Concomitant]
  7. TYLENOL [Concomitant]
     Active Substance: ACETAMINOPHEN
  8. MUCINEX [Concomitant]
     Active Substance: GUAIFENESIN
  9. ASPIRIN [Concomitant]
     Active Substance: ASPIRIN

REACTIONS (5)
  - Urticaria [None]
  - Peripheral swelling [None]
  - Swelling face [None]
  - Lip swelling [None]
  - Swollen tongue [None]

NARRATIVE: CASE EVENT DATE: 20220105
